FAERS Safety Report 5034050-1 (Version None)
Quarter: 2006Q2

REPORT INFORMATION
  Report Type: 
  Country: None (occurrence: None)
  Receive Date: 20060621
  Receipt Date: 20060616
  Transmission Date: 20061013
  Serious: Yes (Hospitalization)
  Sender: FDA-Public Use
  Company Number: HQWYE267919JUN06

PATIENT
  Sex: Male

DRUGS (2)
  1. ADVIL [Suspect]
     Indication: HEADACHE
     Dosage: ORAL
     Route: 048
  2. ADVIL [Suspect]
     Indication: PAIN IN EXTREMITY
     Dosage: ORAL
     Route: 048

REACTIONS (4)
  - ACCIDENT AT WORK [None]
  - DUODENAL ULCER [None]
  - FALL [None]
  - LOSS OF CONSCIOUSNESS [None]
